FAERS Safety Report 20776939 (Version 1)
Quarter: 2022Q2

REPORT INFORMATION
  Report Type: Spontaneous
  Country: GB (occurrence: GB)
  Receive Date: 20220502
  Receipt Date: 20220502
  Transmission Date: 20220721
  Serious: Yes (Other)
  Sender: FDA-Public Use
  Company Number: GB-GILEAD-2022-0579299

PATIENT
  Age: 33 Year
  Sex: Male

DRUGS (2)
  1. TRUVADA [Suspect]
     Active Substance: EMTRICITABINE\TENOFOVIR DISOPROXIL FUMARATE
     Indication: HIV infection
     Dosage: UNK
     Route: 065
  2. DOLUTEGRAVIR [Concomitant]
     Active Substance: DOLUTEGRAVIR

REACTIONS (6)
  - Immune reconstitution inflammatory syndrome associated tuberculosis [Recovered/Resolved]
  - Acute kidney injury [Unknown]
  - Drug ineffective [Unknown]
  - Blood HIV RNA increased [Unknown]
  - Genotype drug resistance test positive [Unknown]
  - Paranoia [Unknown]
